FAERS Safety Report 20151456 (Version 1)
Quarter: 2021Q4

REPORT INFORMATION
  Report Type: Spontaneous
  Country: US (occurrence: None)
  Receive Date: 20211203
  Receipt Date: 20211203
  Transmission Date: 20220303
  Serious: Yes (Hospitalization)
  Sender: FDA-Public Use
  Company Number: None

PATIENT
  Age: 57 Year
  Sex: Male
  Weight: 82.8 kg

DRUGS (3)
  1. HALOPERIDOL [Suspect]
     Active Substance: HALOPERIDOL
     Indication: Schizophrenia
     Dosage: FREQUENCY : TWICE A DAY;?
     Route: 048
     Dates: start: 20211108, end: 20211110
  2. CLOZAPINE [Concomitant]
     Active Substance: CLOZAPINE
     Dates: start: 20211102, end: 20211110
  3. CLOZAPINE [Concomitant]
     Active Substance: CLOZAPINE
     Dates: start: 20211101, end: 20211110

REACTIONS (2)
  - Rhabdomyolysis [None]
  - Neuroleptic malignant syndrome [None]

NARRATIVE: CASE EVENT DATE: 20211110
